FAERS Safety Report 10312207 (Version 1)
Quarter: 2014Q3

REPORT INFORMATION
  Report Type: Spontaneous
  Country: SI (occurrence: SI)
  Receive Date: 20140718
  Receipt Date: 20140718
  Transmission Date: 20150326
  Serious: Yes (Hospitalization)
  Sender: FDA-Public Use
  Company Number: SI-ROCHE-1436354

PATIENT
  Age: 34 Year
  Sex: Male

DRUGS (4)
  1. MEDROL [Concomitant]
     Active Substance: METHYLPREDNISOLONE
     Dosage: THERAPY USED ONLY IN ACTIVE PHASE OF THE DISEASE
     Route: 065
  2. MABTHERA [Suspect]
     Active Substance: RITUXIMAB
     Indication: NON-HODGKIN^S LYMPHOMA
     Dosage: 700 MG OF RITUXIMAB WAS TOTAL SINGLE DOSE?100 MG CONCENTRATE FOR SOLUTION FOR INFUSION?RATE OF INFUS
     Route: 042
     Dates: start: 20140701, end: 20140701
  3. MABTHERA [Suspect]
     Active Substance: RITUXIMAB
     Dosage: 700 MG OF RITUXIMAB WAS TOTAL SINGLE DOSE?500 MG CONCENTRATE FOR SOLUTION FOR INFUSION?RATE OF INFUS
     Route: 042
     Dates: start: 20140701, end: 20140701
  4. LEUKERAN [Concomitant]
     Active Substance: CHLORAMBUCIL
     Dosage: CONTINOUS THERAPY
     Route: 065

REACTIONS (2)
  - Urticaria [Recovered/Resolved]
  - Condition aggravated [Recovered/Resolved]

NARRATIVE: CASE EVENT DATE: 20140701
